FAERS Safety Report 11680315 (Version 2)
Quarter: 2015Q4

REPORT INFORMATION
  Report Type: Spontaneous
  Country: US (occurrence: US)
  Receive Date: 20151027
  Receipt Date: 20151104
  Transmission Date: 20160304
  Serious: No
  Sender: FDA-Public Use
  Company Number: US-ELI_LILLY_AND_COMPANY-US201009007033

PATIENT
  Age: 71 Year
  Sex: Male

DRUGS (1)
  1. FORTEO [Suspect]
     Active Substance: TERIPARATIDE
     Indication: OSTEOPOROSIS
     Dosage: 20 UG, DAILY (1/D)

REACTIONS (11)
  - Tooth disorder [Unknown]
  - Tooth infection [Unknown]
  - Pain in extremity [Unknown]
  - Toothache [Unknown]
  - Hypoaesthesia [Unknown]
  - Headache [Unknown]
  - Pain in jaw [Unknown]
  - Hypoaesthesia teeth [Unknown]
  - Muscle spasms [Unknown]
  - Jaw disorder [Unknown]
  - Nausea [Unknown]
